FAERS Safety Report 19840587 (Version 2)
Quarter: 2021Q3

REPORT INFORMATION
  Report Type: Spontaneous
  Country: AU (occurrence: AU)
  Receive Date: 20210916
  Receipt Date: 20210921
  Transmission Date: 20211014
  Serious: Yes (Other)
  Sender: FDA-Public Use
  Company Number: AU-BAUSCH-BL-2021-031097

PATIENT
  Age: 45 Year
  Sex: Female

DRUGS (8)
  1. TRAMETINIB [Suspect]
     Active Substance: TRAMETINIB
     Indication: PRODUCT USED FOR UNKNOWN INDICATION
     Route: 065
  2. PARACETAMOL [Suspect]
     Active Substance: ACETAMINOPHEN
     Indication: PRODUCT USED FOR UNKNOWN INDICATION
     Route: 065
  3. ASPIRIN. [Concomitant]
     Active Substance: ASPIRIN
     Indication: PRODUCT USED FOR UNKNOWN INDICATION
  4. PREDNISOLONE. [Suspect]
     Active Substance: PREDNISOLONE
     Indication: PRODUCT USED FOR UNKNOWN INDICATION
     Route: 065
  5. PROTHIADEN [Concomitant]
     Active Substance: DOTHIEPIN HYDROCHLORIDE
     Indication: PRODUCT USED FOR UNKNOWN INDICATION
  6. VENLAFAXINE HYDROCHLORIDE. [Suspect]
     Active Substance: VENLAFAXINE HYDROCHLORIDE
     Indication: PRODUCT USED FOR UNKNOWN INDICATION
     Route: 065
  7. TECFIDERA [Suspect]
     Active Substance: DIMETHYL FUMARATE
     Indication: PRODUCT USED FOR UNKNOWN INDICATION
     Route: 065
  8. DABRAFENIB [Suspect]
     Active Substance: DABRAFENIB
     Indication: PRODUCT USED FOR UNKNOWN INDICATION
     Route: 065

REACTIONS (38)
  - Loss of control of legs [Unknown]
  - Multiple sclerosis relapse [Unknown]
  - Multiple sclerosis [Unknown]
  - Abdominal pain [Unknown]
  - Dysstasia [Unknown]
  - Nausea [Unknown]
  - Urinary incontinence [Unknown]
  - Intentional overdose [Unknown]
  - Depression [Unknown]
  - Eating disorder [Unknown]
  - Emotional disorder [Unknown]
  - Gait disturbance [Unknown]
  - Photophobia [Unknown]
  - Poor quality sleep [Unknown]
  - Muscular weakness [Unknown]
  - Stress [Unknown]
  - Vomiting [Unknown]
  - Weight decreased [Unknown]
  - Cognitive disorder [Unknown]
  - Contusion [Unknown]
  - Localised oedema [Unknown]
  - Oedema peripheral [Unknown]
  - Pruritus [Unknown]
  - Crying [Unknown]
  - Emotional distress [Unknown]
  - Mental disorder [Unknown]
  - Speech disorder [Unknown]
  - Malignant melanoma [Unknown]
  - Suicide attempt [Unknown]
  - Anxiety [Unknown]
  - Fall [Unknown]
  - Flushing [Unknown]
  - Gait inability [Unknown]
  - Headache [Unknown]
  - Melanocytic naevus [Unknown]
  - Pain in extremity [Unknown]
  - Peripheral swelling [Unknown]
  - Post procedural discomfort [Unknown]
